FAERS Safety Report 22634265 (Version 1)
Quarter: 2023Q2

REPORT INFORMATION
  Report Type: Spontaneous
  Country: IT (occurrence: IT)
  Receive Date: 20230623
  Receipt Date: 20230623
  Transmission Date: 20230722
  Serious: Yes (Death, Other)
  Sender: FDA-Public Use
  Company Number: IT-SA-2019SA138450

PATIENT
  Age: 71 Year
  Sex: Male
  Weight: 59 kg

DRUGS (6)
  1. EZETIMIBE [Suspect]
     Active Substance: EZETIMIBE
     Indication: Lipids decreased
     Dosage: UNK
     Route: 065
     Dates: start: 20190925, end: 2020
  2. ALIROCUMAB [Suspect]
     Active Substance: ALIROCUMAB
     Indication: Dyslipidaemia
     Dosage: 75 MG, EVERY TWO WEEKS
     Route: 058
     Dates: start: 20180917, end: 20190320
  3. ALIROCUMAB [Suspect]
     Active Substance: ALIROCUMAB
     Dosage: 75 MG, EVERY TWO WEEKS
     Route: 058
     Dates: start: 20190516
  4. ALIROCUMAB [Suspect]
     Active Substance: ALIROCUMAB
     Dosage: 150 MG, EVERY TWO WEEKS
     Route: 058
     Dates: start: 20190320, end: 20190404
  5. ASPIRIN DL-LYSINE [Concomitant]
     Active Substance: ASPIRIN DL-LYSINE
     Indication: Myocardial infarction
     Dosage: UNK
     Route: 065
     Dates: start: 20110101
  6. VALSARTAN [Concomitant]
     Active Substance: VALSARTAN
     Indication: Myocardial ischaemia
     Dosage: UNK
     Route: 065
     Dates: start: 20110101

REACTIONS (7)
  - Cardiovascular disorder [Fatal]
  - Hypothermia [Recovered/Resolved]
  - COVID-19 [Recovered/Resolved with Sequelae]
  - Depression [Recovered/Resolved]
  - Dyspepsia [Recovered/Resolved]
  - Pyrexia [Recovered/Resolved]
  - Abdominal pain [Recovered/Resolved]

NARRATIVE: CASE EVENT DATE: 20190404
